FAERS Safety Report 22316332 (Version 1)
Quarter: 2023Q2

REPORT INFORMATION
  Report Type: Spontaneous
  Country: US (occurrence: US)
  Receive Date: 20230513
  Receipt Date: 20230513
  Transmission Date: 20230722
  Serious: No
  Sender: FDA-Public Use
  Company Number: US-JNJFOC-20230518699

PATIENT
  Sex: Male

DRUGS (2)
  1. SIMPONI [Suspect]
     Active Substance: GOLIMUMAB
     Indication: Psoriatic arthropathy
     Route: 058
  2. OTEZLA [Suspect]
     Active Substance: APREMILAST
     Indication: Psoriatic arthropathy
     Route: 065

REACTIONS (1)
  - Intentional product use issue [Unknown]
